FAERS Safety Report 4363263-7 (Version None)
Quarter: 2004Q2

REPORT INFORMATION
  Report Type: 
  Country: None (occurrence: None)
  Receive Date: 20040517
  Receipt Date: 20040119
  Transmission Date: 20050107
  Serious: No
  Sender: FDA-Public Use
  Company Number: S04-USA-00203-01

PATIENT
  Age: 79 Year
  Sex: Female

DRUGS (5)
  1. NAMENDA [Suspect]
     Dosage: 5 MG ONCE PO
     Route: 048
     Dates: start: 20040118, end: 20040118
  2. LANOXIN [Concomitant]
  3. COUMADIN [Concomitant]
  4. LIPITOR [Concomitant]
  5. TOPROL-XL [Concomitant]

REACTIONS (2)
  - INSOMNIA [None]
  - THROAT TIGHTNESS [None]
